FAERS Safety Report 6230705-1 (Version None)
Quarter: 2009Q2

REPORT INFORMATION
  Report Type: 
  Country: None (occurrence: None)
  Receive Date: 20090616
  Receipt Date: 20090612
  Transmission Date: 20091009
  Serious: Yes (Death, Hospitalization)
  Sender: FDA-Public Use
  Company Number: US-BRISTOL-MYERS SQUIBB COMPANY-14612139

PATIENT
  Age: 62 Year
  Sex: Male
  Weight: 87 kg

DRUGS (11)
  1. ERBITUX [Suspect]
     Indication: OESOPHAGEAL ADENOCARCINOMA
     Dosage: INITIAL DOSE 400MG/M2 IV OVER 120 MINS. 250MG/M2 1 PER WEEK
     Route: 042
     Dates: start: 20090427, end: 20090427
  2. FLUOROURACIL [Suspect]
     Indication: OESOPHAGEAL ADENOCARCINOMA
     Dosage: 180MG/M2 CONTINUOUS INFUSION OVER 24 HRS 1-35 DAYS
     Dates: start: 20090501, end: 20090501
  3. ELOXATIN [Suspect]
     Indication: OESOPHAGEAL ADENOCARCINOMA
     Dosage: 85MG/M2 1 PER 1 WEEK(1,15,29).
     Dates: start: 20090420, end: 20090420
  4. AMBIEN [Concomitant]
  5. ATIVAN [Concomitant]
  6. ZOFRAN [Concomitant]
  7. COMPAZINE [Concomitant]
  8. NIASPAN [Concomitant]
  9. ASPIRIN [Concomitant]
  10. VERAPAMIL [Concomitant]
  11. METFORMIN HYDROCHLORIDE [Concomitant]

REACTIONS (3)
  - HYPOXIA [None]
  - MULTI-ORGAN FAILURE [None]
  - SEPSIS [None]
